FAERS Safety Report 14655835 (Version 1)
Quarter: 2018Q1

REPORT INFORMATION
  Report Type: Spontaneous
  Country: IE (occurrence: IE)
  Receive Date: 20180319
  Receipt Date: 20180319
  Transmission Date: 20180509
  Serious: Yes (Death, Hospitalization)
  Sender: FDA-Public Use
  Company Number: PHHY2018IE044636

PATIENT
  Age: 58 Year
  Sex: Female
  Weight: 100 kg

DRUGS (1)
  1. LETROZOLE. [Suspect]
     Active Substance: LETROZOLE
     Indication: HORMONE THERAPY
     Route: 048

REACTIONS (13)
  - Renal tubular necrosis [Fatal]
  - Atrial fibrillation [Unknown]
  - Pulmonary congestion [Unknown]
  - Hypoperfusion [Unknown]
  - Hepatic congestion [Unknown]
  - Ejection fraction decreased [Unknown]
  - Cardiac failure congestive [Unknown]
  - Cardiac disorder [Unknown]
  - Dilatation ventricular [Unknown]
  - Multiple organ dysfunction syndrome [Fatal]
  - Cardiomyopathy [Fatal]
  - Hypotension [Unknown]
  - Pulmonary embolism [Fatal]
